FAERS Safety Report 10908507 (Version 1)
Quarter: 2015Q1

REPORT INFORMATION
  Report Type: Spontaneous
  Country: US (occurrence: None)
  Receive Date: 20150309
  Receipt Date: 20150309
  Transmission Date: 20150721
  Serious: Yes (Death, Hospitalization)
  Sender: FDA-Public Use
  Company Number: None

PATIENT
  Age: 16 Year
  Sex: Male
  Weight: 80.1 kg

DRUGS (6)
  1. DAUNORUBICIN [Suspect]
     Active Substance: DAUNORUBICIN
  2. ONCASPAR [Suspect]
     Active Substance: PEGASPARGASE
  3. CYTARABINE. [Suspect]
     Active Substance: CYTARABINE
  4. DEXAMETHASONE. [Suspect]
     Active Substance: DEXAMETHASONE
  5. VINCRISTINE SULFATE. [Suspect]
     Active Substance: VINCRISTINE SULFATE
  6. METHOTREXATE [Suspect]
     Active Substance: METHOTREXATE

REACTIONS (1)
  - Aspergillus infection [None]

NARRATIVE: CASE EVENT DATE: 20150225
